FAERS Safety Report 8300393-9 (Version None)
Quarter: 2012Q2

REPORT INFORMATION
  Report Type: 
  Country: None (occurrence: None)
  Receive Date: 20120420
  Receipt Date: 20120411
  Transmission Date: 20120825
  Serious: Yes (Other)
  Sender: FDA-Public Use
  Company Number: AU-JNJFOC-20120406236

PATIENT
  Age: 54 Year
  Sex: Male

DRUGS (1)
  1. INVEGA SUSTENNA [Suspect]
     Indication: PRODUCT USED FOR UNKNOWN INDICATION
     Dosage: 3 INJECTIONS
     Route: 030

REACTIONS (4)
  - BACK PAIN [None]
  - MUSCLE SPASMS [None]
  - MEMORY IMPAIRMENT [None]
  - PARKINSONISM [None]
